FAERS Safety Report 9765215 (Version 1)
Quarter: 2013Q4

REPORT INFORMATION
  Report Type: Spontaneous
  Country: US (occurrence: US)
  Receive Date: 20131217
  Receipt Date: 20131217
  Transmission Date: 20140711
  Serious: No
  Sender: FDA-Public Use
  Company Number: US-GLAXOSMITHKLINE-A1035711A

PATIENT
  Age: 54 Year
  Sex: Female

DRUGS (3)
  1. SORIATANE [Suspect]
     Indication: LICHEN PLANUS
     Dosage: 25MG PER DAY
     Route: 048
     Dates: start: 201303, end: 201305
  2. CYCLOSPORIN [Suspect]
     Indication: LICHEN PLANUS
     Dates: start: 201305
  3. PREDNISONE [Concomitant]

REACTIONS (3)
  - Alopecia [Not Recovered/Not Resolved]
  - Drug ineffective [Unknown]
  - Off label use [Unknown]
